FAERS Safety Report 7629009-1 (Version None)
Quarter: 2011Q3

REPORT INFORMATION
  Report Type: 
  Country: None (occurrence: None)
  Receive Date: 20110722
  Receipt Date: 20100614
  Transmission Date: 20111222
  Serious: No
  Sender: FDA-Public Use
  Company Number: US-MYLANLABS-2010S1010570

PATIENT
  Age: 55 Year
  Sex: Female

DRUGS (2)
  1. ADVAIR DISKUS 100/50 [Concomitant]
  2. CIPROFLOXACIN [Suspect]
     Indication: INFLAMMATION
     Route: 048
     Dates: start: 20100513, end: 20100516

REACTIONS (3)
  - BLISTER [None]
  - RASH ERYTHEMATOUS [None]
  - PRURITUS [None]
